FAERS Safety Report 5545935-1 (Version None)
Quarter: 2007Q4

REPORT INFORMATION
  Report Type: 
  Country: None (occurrence: None)
  Receive Date: 20071211
  Receipt Date: 20071127
  Transmission Date: 20080405
  Serious: No
  Sender: FDA-Public Use
  Company Number: US-ASTRAZENECA-2007UW25373

PATIENT
  Age: 53 Year
  Sex: Male
  Weight: 110.5 kg

DRUGS (5)
  1. SYMBICORT [Suspect]
     Indication: ASTHMA
     Dosage: 160/9.0 UG BID
     Route: 055
     Dates: start: 20071010
  2. COZAAR [Concomitant]
  3. NORVASC [Concomitant]
  4. EFFEXOR [Concomitant]
  5. XANAX [Concomitant]

REACTIONS (4)
  - BLOOD PRESSURE INCREASED [None]
  - DIZZINESS [None]
  - HEART RATE INCREASED [None]
  - SUTURE INSERTION [None]
